FAERS Safety Report 8115114-2 (Version None)
Quarter: 2012Q1

REPORT INFORMATION
  Report Type: 
  Country: None (occurrence: None)
  Receive Date: 20120206
  Receipt Date: 20120203
  Transmission Date: 20120608
  Serious: Yes (Other)
  Sender: FDA-Public Use
  Company Number: US-BAYER-2012-011251

PATIENT
  Age: 49 Year
  Sex: Female

DRUGS (5)
  1. AVONEX [Concomitant]
  2. BETASERON [Suspect]
     Indication: MULTIPLE SCLEROSIS
     Dosage: UNK
     Dates: start: 20070101
  3. CORTICOSTEROIDS [Concomitant]
     Indication: STOMATITIS
  4. AMPYRA [Concomitant]
  5. MORPHINE [Concomitant]

REACTIONS (5)
  - MOBILITY DECREASED [None]
  - DEPRESSION [None]
  - ACTIVITIES OF DAILY LIVING IMPAIRED [None]
  - ABASIA [None]
  - MENTAL DISORDER [None]
